FAERS Safety Report 8881748 (Version 1)
Quarter: 2012Q4

REPORT INFORMATION
  Report Type: 
  Country: NZ (occurrence: NZ)
  Receive Date: 20121102
  Receipt Date: 20121102
  Transmission Date: 20130627
  Serious: Yes (Other)
  Sender: FDA-Public Use
  Company Number: NZ-BRISTOL-MYERS SQUIBB COMPANY-17083734

PATIENT
  Age: 58 Year

DRUGS (1)
  1. YERVOY [Suspect]
     Dosage: Initially scheduled for 31 Septembr 2012 was delayed. Infusion rescheduled on 7Nov12

REACTIONS (1)
  - Pulmonary embolism [Unknown]
